FAERS Safety Report 8533214-X (Version None)
Quarter: 2012Q3

REPORT INFORMATION
  Report Type: 
  Country: None (occurrence: None)
  Receive Date: 20120724
  Receipt Date: 20120719
  Transmission Date: 20120928
  Serious: Yes (Other)
  Sender: FDA-Public Use
  Company Number: BR-PFIZER INC-2012167617

PATIENT
  Age: 65 Year
  Sex: Female
  Weight: 57 kg

DRUGS (6)
  1. OMEPRAZOLE [Concomitant]
     Indication: ABDOMINAL PAIN UPPER
  2. SUTENT [Suspect]
     Indication: RENAL CANCER
     Dosage: UNK
     Route: 048
     Dates: start: 20100710
  3. MORPHINE SULFATE [Suspect]
     Indication: PAIN
  4. SUTENT [Suspect]
     Dosage: 25 MG, 1X/DAY
     Route: 048
     Dates: end: 20120701
  5. SUTENT [Suspect]
     Dosage: STRENGHT 50MG
     Route: 048
  6. MORPHINE SULFATE [Concomitant]
     Indication: PAIN

REACTIONS (10)
  - DECREASED APPETITE [None]
  - HALLUCINATION [None]
  - ABDOMINAL DISCOMFORT [None]
  - EMOTIONAL DISORDER [None]
  - FEMUR FRACTURE [None]
  - AGEUSIA [None]
  - ASTHENIA [None]
  - SPINAL FRACTURE [None]
  - DIARRHOEA [None]
  - PRURITUS GENERALISED [None]
